FAERS Safety Report 16793863 (Version 2)
Quarter: 2020Q4

REPORT INFORMATION
  Report Type: Spontaneous
  Country: US (occurrence: US)
  Receive Date: 20190911
  Receipt Date: 20201022
  Transmission Date: 20210113
  Serious: Yes (Death, Hospitalization, Other)
  Sender: FDA-Public Use
  Company Number: US-SUN PHARMACEUTICAL INDUSTRIES LTD-2019R1-220060

PATIENT
  Age: 35 Year
  Sex: Female

DRUGS (1)
  1. FLECAINIDE [Suspect]
     Active Substance: FLECAINIDE
     Indication: PRODUCT USED FOR UNKNOWN INDICATION
     Dosage: UNK
     Route: 065

REACTIONS (6)
  - Overdose [Fatal]
  - Bradycardia [Unknown]
  - Arrhythmia [Unknown]
  - Drug level increased [Unknown]
  - Cardiac arrest [Unknown]
  - Hypotension [Unknown]
